FAERS Safety Report 7056617-1 (Version None)
Quarter: 2010Q4

REPORT INFORMATION
  Report Type: 
  Country: None (occurrence: None)
  Receive Date: 20101018
  Receipt Date: 20101001
  Transmission Date: 20110411
  Serious: Yes (Death, Hospitalization)
  Sender: FDA-Public Use
  Company Number: 1000016710

PATIENT
  Age: 82 Year
  Sex: Male

DRUGS (17)
  1. CITALOPRAM HYDROBROMIDE [Suspect]
     Dosage: 20 MG (20 MG, 1 IN 1 D), ORAL
     Route: 048
     Dates: end: 20100802
  2. CITALOPRAM HYDROBROMIDE [Suspect]
     Dosage: 20 MG (20 MG, 1 IN 1 D), ORAL
     Route: 048
     Dates: start: 20100829, end: 20100831
  3. CYMBALTA [Suspect]
     Indication: MOOD ALTERED
     Dosage: 60 MG (60 MG, 1 IN 1 D), ORAL
     Route: 048
     Dates: start: 20100802, end: 20100903
  4. TRAMADOL HYDROCHLORIDE [Suspect]
     Indication: PAIN
     Dosage: 50 MG (50 MG, 1 IN 1 D), ORAL
     Route: 048
     Dates: start: 20100903, end: 20100903
  5. TEMESTA (LORAZEPAM) (LORAZEPAM) [Concomitant]
  6. NOZINAN (LEVOMEPROMAZINE) (LEVOMEPROMAZINE) [Concomitant]
  7. ATARAX [Concomitant]
  8. ALPRAZOLAM [Concomitant]
  9. SERESTA (OXAZEPAM) (OXAZEPAM) [Concomitant]
  10. IMOVANE (ZOPICLONE) (ZOPICLONE) [Concomitant]
  11. AMLODIPINE [Concomitant]
  12. FUROSEMIDE [Concomitant]
  13. LACTULOSE (LACTULOSE) (LACTULOSE) [Concomitant]
  14. FENOFIBRATE [Concomitant]
  15. RISPERDAL [Concomitant]
  16. PARACETAMOL (PARACETAMOL) (PARACETAMOL) [Concomitant]
  17. HEPARIN LMW (DALTEPARIN SODIUM) (DALTEPARIN SODIUM) [Concomitant]

REACTIONS (24)
  - AGGRESSION [None]
  - BACTERIAL TEST POSITIVE [None]
  - BLOOD CHLORIDE INCREASED [None]
  - BLOOD CREATINE PHOSPHOKINASE INCREASED [None]
  - BLOOD CREATININE INCREASED [None]
  - BLOOD POTASSIUM DECREASED [None]
  - BLOOD SODIUM INCREASED [None]
  - BLOOD UREA INCREASED [None]
  - BUNDLE BRANCH BLOCK RIGHT [None]
  - CONVULSION [None]
  - DECREASED APPETITE [None]
  - DEPRESSED LEVEL OF CONSCIOUSNESS [None]
  - DYSKINESIA [None]
  - ELECTROCARDIOGRAM REPOLARISATION ABNORMALITY [None]
  - EXTRAPYRAMIDAL DISORDER [None]
  - HYPERHIDROSIS [None]
  - HYPERTONIA [None]
  - INSOMNIA [None]
  - MOTOR DYSFUNCTION [None]
  - MYALGIA [None]
  - SEROTONIN SYNDROME [None]
  - TREMOR [None]
  - WHITE BLOOD CELL COUNT INCREASED [None]
  - WHITE BLOOD CELLS URINE POSITIVE [None]
